FAERS Safety Report 15337562 (Version 1)
Quarter: 2018Q3

REPORT INFORMATION
  Report Type: Spontaneous
  Country: DE (occurrence: US)
  Receive Date: 20180831
  Receipt Date: 20180831
  Transmission Date: 20181010
  Serious: No
  Sender: FDA-Public Use
  Company Number: DE-009507513-2010SP021639

PATIENT
  Sex: Female
  Weight: 70 kg

DRUGS (3)
  1. AMPICILLIN [Concomitant]
     Active Substance: AMPICILLIN
     Indication: INFLUENZA LIKE ILLNESS
     Dosage: UNK UNK, BID
     Dates: start: 20100304, end: 20100311
  2. DOXYCYCLINE. [Concomitant]
     Active Substance: DOXYCYCLINE
     Indication: INFLUENZA LIKE ILLNESS
     Dosage: 200 MG, QD (ALSO REPORTED AS 100 MG, BID)
     Dates: start: 20100304, end: 20100313
  3. IMPLANON [Suspect]
     Active Substance: ETONOGESTREL
     Indication: PRODUCT USED FOR UNKNOWN INDICATION
     Dosage: 1 DF, UNK
     Dates: start: 20070621

REACTIONS (1)
  - Pregnancy with implant contraceptive [Recovered/Resolved]
